FAERS Safety Report 25191027 (Version 4)
Quarter: 2025Q3

REPORT INFORMATION
  Report Type: Spontaneous
  Country: US (occurrence: US)
  Receive Date: 20250411
  Receipt Date: 20250806
  Transmission Date: 20251021
  Serious: Yes (Hospitalization)
  Sender: NAPO PHARMACEUTICALS
  Company Number: US-NAPO PHARMACEUTICALS-2025US000209

PATIENT

DRUGS (2)
  1. MYTESI [Suspect]
     Active Substance: CROFELEMER
     Indication: Short-bowel syndrome
     Dosage: 125 MG, BID
     Route: 048
     Dates: start: 20240626
  2. XIFAXAN [Concomitant]
     Active Substance: RIFAXIMIN

REACTIONS (12)
  - Norovirus infection [Unknown]
  - Hypovolaemic shock [Unknown]
  - Product dose omission issue [Unknown]
  - Product dose omission issue [Unknown]
  - Osteoporotic fracture [Unknown]
  - Surgery [Unknown]
  - Product dose omission issue [Recovered/Resolved]
  - Swelling [Unknown]
  - Off label use [Unknown]
  - Rhinorrhoea [Not Recovered/Not Resolved]
  - Spinal claudication [Not Recovered/Not Resolved]
  - Fatigue [Unknown]

NARRATIVE: CASE EVENT DATE: 20240626
